FAERS Safety Report 9992585 (Version 2)
Quarter: 2014Q1

REPORT INFORMATION
  Report Type: Report from Study
  Country: AU (occurrence: AU)
  Receive Date: 20140310
  Receipt Date: 20140328
  Transmission Date: 20141002
  Serious: Yes (Hospitalization)
  Sender: FDA-Public Use
  Company Number: AU-VERTEX PHARMACEUTICALS INC-2014-001073

PATIENT
  Age: 25 Year
  Sex: Male
  Weight: 64 kg

DRUGS (44)
  1. VX-809 FDC [Suspect]
     Indication: CYSTIC FIBROSIS
     Dosage: 400 MG, BID
     Route: 048
     Dates: start: 20130802, end: 20140120
  2. VX-809 FDC [Suspect]
     Dosage: 400 MG, BID
     Route: 048
     Dates: start: 20140121, end: 20140220
  3. VX-809 FDC [Suspect]
     Dosage: 400 MG, BID
     Route: 048
     Dates: start: 20140310
  4. VX-770 FDC [Suspect]
     Indication: CYSTIC FIBROSIS
     Dosage: 250 MG, BID
     Route: 048
     Dates: start: 20130802, end: 20140120
  5. VX-770 FDC [Suspect]
     Dosage: 250 MG, BID
     Route: 048
     Dates: start: 20140121, end: 20140220
  6. VX-770 FDC [Suspect]
     Dosage: 250 MG, BID
     Route: 048
     Dates: start: 20140310
  7. SALBUTAMOL [Concomitant]
     Indication: BRONCHIECTASIS
     Dosage: 5 MG, QID
     Route: 055
     Dates: start: 20090101
  8. HYPERTONIC SALINE SOLUTION [Concomitant]
     Indication: BRONCHIECTASIS
     Dosage: 3%
     Route: 055
     Dates: start: 20060101
  9. HYPERTONIC SALINE SOLUTION [Concomitant]
     Dosage: 5 ML, BID, 6%
     Route: 055
  10. PULMOZYME [Concomitant]
     Indication: BRONCHIECTASIS
     Dosage: 2.5 MG, QD
     Route: 055
     Dates: start: 20010101
  11. COLOMYCIN [Concomitant]
     Indication: BRONCHIECTASIS
     Dosage: 1 MILLION IU, BID
     Route: 055
     Dates: start: 20130101
  12. SERETIDE [Concomitant]
     Indication: BRONCHIECTASIS
     Dosage: 2 DF, BID
     Route: 055
     Dates: start: 20040101
  13. RHINOCORT [Concomitant]
     Indication: RHINITIS
     Dosage: UNK
     Route: 045
     Dates: start: 20090101
  14. CREON [Concomitant]
     Indication: PANCREATIC INSUFFICIENCY
     Dosage: 10000 IU, W/MEALS
     Route: 048
     Dates: start: 20000101
  15. OMEPRAZOLE [Concomitant]
     Indication: GASTROOESOPHAGEAL REFLUX DISEASE
     Dosage: 40 MG, MANE
     Route: 048
     Dates: start: 20120101
  16. MAXOLON [Concomitant]
     Indication: GASTROOESOPHAGEAL REFLUX DISEASE
     Dosage: 10 MG, NOCTE
     Route: 048
     Dates: start: 20120101
  17. AMPHOTERICIN [Concomitant]
     Indication: CANDIDA INFECTION
     Dosage: 1 DF, NOCTE
     Route: 048
     Dates: start: 20120101
  18. NILSTAT [Concomitant]
     Indication: CANDIDA INFECTION
     Dosage: UNK
     Route: 048
     Dates: start: 20120101
  19. ADEK [Concomitant]
     Indication: HYPOVITAMINOSIS
     Dosage: 1 DF, BID
     Route: 048
     Dates: start: 20050101
  20. ADEK [Concomitant]
     Indication: PANCREATIC INSUFFICIENCY
  21. VITAMIN B C COMPLEX [Concomitant]
     Indication: HYPOVITAMINOSIS
     Dosage: 1 DF, BID
     Route: 048
     Dates: start: 20050101
  22. VITAMIN D [Concomitant]
     Indication: OSTEOPOROSIS
     Dosage: UNK
     Route: 048
     Dates: start: 20130101
  23. FERROGRAD C [Concomitant]
     Indication: HYPOVITAMINOSIS
     Dosage: 325 MG, NOCTE
     Route: 048
     Dates: start: 20060101
  24. VITAMIN E [Concomitant]
     Indication: HYPOVITAMINOSIS
     Dosage: 500 IU, NOCTE
     Route: 048
     Dates: start: 20060101
  25. BIOZINC [Concomitant]
     Indication: HYPOVITAMINOSIS
     Dosage: 100 MG, BID
     Route: 048
     Dates: start: 20090101
  26. OSTELIN VITAMIN D + CALCIUM [Concomitant]
     Indication: HYPOVITAMINOSIS
     Dosage: 1500MG/12.5MCG, BID
     Route: 048
     Dates: start: 20090101
  27. OSTELIN VITAMIN D + CALCIUM [Concomitant]
     Indication: OSTEOPOROSIS
  28. MULTIVITAMIN [Concomitant]
     Indication: HYPOVITAMINOSIS
     Dosage: 1 DF, MANE
     Route: 048
     Dates: start: 20060101
  29. HORSERADISH + GARLIC + VITAMIN C [Concomitant]
     Indication: HYPOVITAMINOSIS
     Dosage: 500 MG, NOCTE
     Route: 048
     Dates: start: 19950101
  30. TAMIFLU [Concomitant]
     Indication: INFLUENZA
     Dosage: UNK
     Route: 048
     Dates: start: 20130813, end: 20130822
  31. MOVICOL [Concomitant]
     Indication: CONSTIPATION
     Dosage: UNK
     Route: 048
     Dates: start: 20130101
  32. LACTULOSE [Concomitant]
     Indication: CONSTIPATION
     Dosage: UNK
     Route: 048
     Dates: start: 20120101
  33. VITAMIN D [Concomitant]
     Indication: HYPOVITAMINOSIS
     Dosage: 100000 UNK, UNK
     Route: 042
     Dates: start: 20130825, end: 20130825
  34. MINOCYCLINE [Concomitant]
     Indication: ACNE
     Dosage: UNK
     Route: 048
     Dates: start: 20131022
  35. NUROFEN COLD + FLU [Concomitant]
     Indication: PROPHYLAXIS
     Dosage: UNK
     Route: 048
     Dates: start: 20130805, end: 20130810
  36. ECONAZOLE [Concomitant]
     Indication: TINEA VERSICOLOUR
     Dosage: 10 MG, UNK
     Route: 061
     Dates: start: 20131130, end: 20131202
  37. KETOCONAZOLE [Concomitant]
     Indication: TINEA VERSICOLOUR
     Dosage: UNK
     Route: 061
     Dates: start: 20131203, end: 20131215
  38. PARACETAMOL [Concomitant]
     Indication: PYREXIA
  39. FLO NASAL RINSE [Concomitant]
     Indication: SINUSITIS
     Dosage: 1 DF, BID
     Route: 045
  40. BUDESONIDE [Concomitant]
     Dosage: 128 ?G, NOCTE
     Route: 045
  41. VITAMIN D3 [Concomitant]
     Indication: OSTEOPOROSIS
     Dosage: 50000 IU, EVERY 2 WEEKS
     Route: 048
  42. VITAMIN D3 [Concomitant]
     Dosage: 3000 IU, QD
     Route: 048
  43. AZITHROMYCIN [Concomitant]
     Dosage: 500 MG, QD
     Route: 048
  44. IRON [Concomitant]
     Route: 042

REACTIONS (2)
  - Lobar pneumonia [Recovering/Resolving]
  - Distal intestinal obstruction syndrome [Recovered/Resolved]
